FAERS Safety Report 8972292 (Version 1)
Quarter: 2012Q4

REPORT INFORMATION
  Report Type: 
  Country: EC (occurrence: EC)
  Receive Date: 20121219
  Receipt Date: 20121219
  Transmission Date: 20130627
  Serious: Yes (Other)
  Sender: FDA-Public Use
  Company Number: EC-PFIZER INC-2012318443

PATIENT
  Age: 37 Year
  Sex: Female

DRUGS (1)
  1. CELEBREX [Suspect]
     Indication: BACK PAIN
     Dosage: 200 mg, 2x/day
     Route: 048
     Dates: start: 2009, end: 20120906

REACTIONS (1)
  - Gallbladder disorder [Unknown]
